FAERS Safety Report 4800584-5 (Version None)
Quarter: 2005Q4

REPORT INFORMATION
  Report Type: 
  Country: None (occurrence: None)
  Receive Date: 20051017
  Receipt Date: 20051011
  Transmission Date: 20060501
  Serious: Yes (Death, Hospitalization)
  Sender: FDA-Public Use
  Company Number: US-SANOFI-SYNTHELABO-F03200500154

PATIENT
  Age: 55 Year
  Sex: Male

DRUGS (4)
  1. OXALIPLATIN [Suspect]
     Indication: ADENOCARCINOMA PANCREAS
     Dosage: 100 MG/M2, EVERY 28 DAYS, DAY 2, 16
     Route: 042
     Dates: start: 20050915, end: 20050915
  2. BEVACIZUMAB [Suspect]
     Indication: ADENOCARCINOMA PANCREAS
     Dosage: 10 MG/KG, EVERY 28 DAYS, DAY 1, 15
     Route: 042
     Dates: start: 20050915, end: 20050915
  3. GEMCITABINE [Suspect]
     Indication: ADENOCARCINOMA PANCREAS
     Dosage: 1000 MG/M2, EVERY 28 DAYS, DAY 1, DAY 15
     Route: 042
     Dates: start: 20050915, end: 20050915
  4. MORPHINE [Concomitant]
     Dosage: UNK
     Route: 042

REACTIONS (1)
  - CEREBRAL ISCHAEMIA [None]
